FAERS Safety Report 9883579 (Version 1)
Quarter: 2014Q1

REPORT INFORMATION
  Report Type: Spontaneous
  Country: GB (occurrence: GB)
  Receive Date: 20140210
  Receipt Date: 20140210
  Transmission Date: 20141002
  Serious: Yes (Death)
  Sender: FDA-Public Use
  Company Number: GB-ROCHE-1346192

PATIENT
  Age: 64 Year
  Sex: Female

DRUGS (6)
  1. LUCENTIS [Suspect]
     Indication: PRODUCT USED FOR UNKNOWN INDICATION
     Route: 050
     Dates: start: 20131118
  2. CARBAMAZEPINE [Concomitant]
  3. GLIMEPIRIDE [Concomitant]
  4. BUSCOPAN [Concomitant]
  5. LOPERAMIDE [Concomitant]
  6. MORPHINE [Concomitant]

REACTIONS (2)
  - Cardiogenic shock [Fatal]
  - Acute myocardial infarction [Fatal]
